FAERS Safety Report 15142933 (Version 1)
Quarter: 2018Q3

REPORT INFORMATION
  Report Type: Spontaneous
  Country: US (occurrence: US)
  Receive Date: 20180713
  Receipt Date: 20180713
  Transmission Date: 20181010
  Serious: No
  Sender: FDA-Public Use
  Company Number: US-ASTELLAS-2018US003808

PATIENT
  Sex: Female

DRUGS (2)
  1. MYRBETRIQ [Suspect]
     Active Substance: MIRABEGRON
     Indication: MICTURITION URGENCY
  2. MYRBETRIQ [Suspect]
     Active Substance: MIRABEGRON
     Indication: URINARY INCONTINENCE
     Route: 065
     Dates: end: 201801

REACTIONS (6)
  - Urinary incontinence [Unknown]
  - Drug effect incomplete [Unknown]
  - Blood pressure increased [Recovered/Resolved]
  - Drug effect decreased [Unknown]
  - Intentional product misuse [Unknown]
  - Dysuria [Unknown]
